FAERS Safety Report 10666699 (Version 1)
Quarter: 2014Q4

REPORT INFORMATION
  Report Type: Spontaneous
  Country: US (occurrence: US)
  Receive Date: 20141222
  Receipt Date: 20141222
  Transmission Date: 20150529
  Serious: Yes (Hospitalization, Other)
  Sender: FDA-Public Use
  Company Number: US-AMGEN-USASP2014098771

PATIENT
  Age: 52 Year
  Sex: Female

DRUGS (1)
  1. ENBREL [Suspect]
     Active Substance: ETANERCEPT
     Indication: RHEUMATOID ARTHRITIS
     Dosage: 50 MG, QWK
     Route: 065
     Dates: start: 20140620

REACTIONS (6)
  - Atrial fibrillation [Not Recovered/Not Resolved]
  - Varices oesophageal [Recovered/Resolved]
  - Mitral valve prolapse [Not Recovered/Not Resolved]
  - Haematemesis [Recovered/Resolved]
  - Localised intraabdominal fluid collection [Recovered/Resolved]
  - Haematochezia [Recovered/Resolved]

NARRATIVE: CASE EVENT DATE: 2014
